FAERS Safety Report 5453545-X (Version None)
Quarter: 2007Q3

REPORT INFORMATION
  Report Type: 
  Country: None (occurrence: None)
  Receive Date: 20070913
  Receipt Date: 20070905
  Transmission Date: 20080115
  Serious: Yes (Other)
  Sender: FDA-Public Use
  Company Number: 2006JP000312

PATIENT
  Age: 73 Year
  Sex: Male
  Weight: 49.8 kg

DRUGS (8)
  1. FUNGUARD              (MICAFUNGIN) [Suspect]
     Indication: BRONCHOPULMONARY ASPERGILLOSIS
     Dosage: 150 MG, UID/QD, IV DRIP
     Route: 041
     Dates: start: 20060111, end: 20060130
  2. RIFADIN [Concomitant]
  3. ETHAMBUTOL HYDROCHLORIDE [Concomitant]
  4. CLARITHROMYCIN [Concomitant]
  5. LEVOFLOXACIN [Concomitant]
  6. PREDNISOLONE [Concomitant]
  7. OMEPRAL [Concomitant]
  8. MAGLAX         (MAGNESIUM OXIDE) [Concomitant]

REACTIONS (1)
  - PANCREATITIS ACUTE [None]
